FAERS Safety Report 8492304-0 (Version None)
Quarter: 2012Q3

REPORT INFORMATION
  Report Type: 
  Country: None (occurrence: None)
  Receive Date: 20120706
  Receipt Date: 20120702
  Transmission Date: 20120928
  Serious: No
  Sender: FDA-Public Use
  Company Number: US-PFIZER INC-2012158581

PATIENT
  Sex: Male

DRUGS (3)
  1. TAMOXIFEN [Concomitant]
     Dosage: UNK
  2. EFFEXOR [Suspect]
     Dosage: 75 MG, FIRST WEEK
  3. EFFEXOR [Suspect]
     Dosage: 150 MG, UNK

REACTIONS (1)
  - VISUAL IMPAIRMENT [None]
